FAERS Safety Report 8523860-1 (Version None)
Quarter: 2012Q3

REPORT INFORMATION
  Report Type: 
  Country: None (occurrence: None)
  Receive Date: 20120720
  Receipt Date: 20120711
  Transmission Date: 20120928
  Serious: Yes (Hospitalization)
  Sender: FDA-Public Use
  Company Number: US-JNJFOC-20120705794

PATIENT
  Age: 42 Year
  Sex: Female

DRUGS (2)
  1. ENBREL [Concomitant]
     Indication: MULTIMORBIDITY
     Route: 065
  2. STELARA [Suspect]
     Indication: PSORIASIS
     Dosage: PATIENT RECEIVED ONLY ONE DOSE
     Route: 058
     Dates: start: 20111001, end: 20111001

REACTIONS (1)
  - PANCREATITIS ACUTE [None]
